FAERS Safety Report 15890320 (Version 1)
Quarter: 2019Q1

REPORT INFORMATION
  Report Type: Spontaneous
  Country: ES (occurrence: ES)
  Receive Date: 20190130
  Receipt Date: 20190130
  Transmission Date: 20190417
  Serious: Yes (Death)
  Sender: FDA-Public Use
  Company Number: ES-ABBVIE-06P-221-0779894-00

PATIENT
  Age: 65 Year
  Sex: Male

DRUGS (4)
  1. TESTOGEL [Suspect]
     Active Substance: TESTOSTERONE
     Indication: ORGANIC ERECTILE DYSFUNCTION
     Dosage: DAILY DOSE:  UNKNOWN
     Route: 003
     Dates: start: 20060202, end: 20060304
  2. CARDURAN NEO [Concomitant]
     Active Substance: DOXAZOSIN MESYLATE
     Indication: ESSENTIAL HYPERTENSION
     Dosage: DAILY DOSE: 4 MILLIGRAM(S)
     Route: 048
     Dates: end: 20060304
  3. HYPOARTEL [Concomitant]
     Indication: ESSENTIAL HYPERTENSION
     Dosage: DAILY DOSE: 1 DOSAGE FORM, 28 TABLETS
     Route: 048
     Dates: end: 20060304
  4. TESTOGEL [Suspect]
     Active Substance: TESTOSTERONE
     Indication: ORGANIC ERECTILE DYSFUNCTION

REACTIONS (1)
  - Death [Fatal]

NARRATIVE: CASE EVENT DATE: 20060304
